APPROVED DRUG PRODUCT: LEVETIRACETAM IN SODIUM CHLORIDE
Active Ingredient: LEVETIRACETAM
Strength: 500MG/100ML (5MG/ML)
Dosage Form/Route: INJECTABLE;INTRAVENOUS
Application: A217059 | Product #001 | TE Code: AP
Applicant: BAXTER HEALTHCARE CORP
Approved: Oct 2, 2023 | RLD: No | RS: No | Type: RX